FAERS Safety Report 19936196 (Version 1)
Quarter: 2021Q4

REPORT INFORMATION
  Report Type: Spontaneous
  Country: US (occurrence: US)
  Receive Date: 20211008
  Receipt Date: 20211008
  Transmission Date: 20220304
  Serious: Yes (Hospitalization, Other)
  Sender: FDA-Public Use
  Company Number: US-ALLERGAN-2134016US

PATIENT
  Sex: Male

DRUGS (4)
  1. DAPSONE [Interacting]
     Active Substance: DAPSONE
     Indication: Pemphigoid
     Dates: start: 202011, end: 202102
  2. ROPIVACAINE. [Interacting]
     Active Substance: ROPIVACAINE HYDROCHLORIDE
     Indication: Nerve block
     Dates: start: 202102, end: 202102
  3. FENTANYL [Concomitant]
     Active Substance: FENTANYL
     Indication: Anxiety
     Dates: start: 202102
  4. LIDOCAINE [Concomitant]
     Active Substance: LIDOCAINE
     Indication: Nerve block
     Dates: start: 202102, end: 202102

REACTIONS (3)
  - Drug interaction [Unknown]
  - Methaemoglobinaemia [Recovered/Resolved]
  - Off label use [Unknown]

NARRATIVE: CASE EVENT DATE: 20210101
